FAERS Safety Report 12184418 (Version 1)
Quarter: 2016Q1

REPORT INFORMATION
  Report Type: Spontaneous
  Country: US (occurrence: US)
  Receive Date: 20160316
  Receipt Date: 20160316
  Transmission Date: 20160526
  Serious: No
  Sender: FDA-Public Use
  Company Number: US-009507513-1603USA003250

PATIENT
  Sex: Male

DRUGS (7)
  1. REXULTI [Suspect]
     Active Substance: BREXPIPRAZOLE
     Dosage: 2 MG, QD
     Route: 048
     Dates: start: 20151202
  2. BUSPAR [Concomitant]
     Active Substance: BUSPIRONE HYDROCHLORIDE
     Dosage: DOSE WAS TAPERED OFF
     Dates: start: 20151209
  3. BUSPAR [Concomitant]
     Active Substance: BUSPIRONE HYDROCHLORIDE
     Dosage: UNK
     Dates: end: 20151209
  4. LITHIUM. [Concomitant]
     Active Substance: LITHIUM
     Dosage: UNK
  5. TRILAFON [Suspect]
     Active Substance: PERPHENAZINE
     Dosage: UNK
     Route: 048
     Dates: start: 2015, end: 20151124
  6. REXULTI [Suspect]
     Active Substance: BREXPIPRAZOLE
     Indication: BIPOLAR I DISORDER
     Dosage: 1 MG, QD
     Route: 048
     Dates: start: 20151125, end: 20151202
  7. DEPAKOTE [Concomitant]
     Active Substance: DIVALPROEX SODIUM
     Dosage: UNK

REACTIONS (1)
  - Hallucination, auditory [Recovering/Resolving]

NARRATIVE: CASE EVENT DATE: 2015
